FAERS Safety Report 5848959-X (Version None)
Quarter: 2008Q3

REPORT INFORMATION
  Report Type: 
  Country: None (occurrence: None)
  Receive Date: 20080819
  Receipt Date: 20080812
  Transmission Date: 20090109
  Serious: Yes (Life-Threatening, Hospitalization, Other)
  Sender: FDA-Public Use
  Company Number: PHHY2008FR17085

PATIENT
  Sex: Male

DRUGS (6)
  1. EXJADE [Suspect]
     Indication: IRON OVERLOAD
     Dosage: 750 MG DAILY
     Dates: start: 20080101
  2. EXJADE [Suspect]
     Indication: SICKLE CELL ANAEMIA
  3. ORACILLINE [Concomitant]
     Dosage: PER OS
  4. FOLIC ACID [Concomitant]
     Dosage: PER  OS
  5. DOLIPRANE [Concomitant]
     Indication: PAIN
     Dosage: UNK
     Route: 042
     Dates: start: 20080712, end: 20080713
  6. MORPHINE [Concomitant]
     Indication: PAIN
     Dosage: UNK
     Route: 042
     Dates: start: 20080712, end: 20080713

REACTIONS (4)
  - ABDOMINAL PAIN [None]
  - BLOOD PRESSURE INCREASED [None]
  - COMA [None]
  - REVERSIBLE POSTERIOR LEUKOENCEPHALOPATHY SYNDROME [None]
